FAERS Safety Report 8610846-1 (Version None)
Quarter: 2012Q3

REPORT INFORMATION
  Report Type: 
  Country: None (occurrence: None)
  Receive Date: 20120822
  Receipt Date: 20120511
  Transmission Date: 20120928
  Serious: Yes (Other)
  Sender: FDA-Public Use
  Company Number: CA-SANOFI-AVENTIS-2010SA056079

PATIENT
  Age: 78 Year
  Sex: Male
  Weight: 110.5 kg

DRUGS (8)
  1. AVAPRO [Concomitant]
  2. ATENOLOL [Concomitant]
  3. WARFARIN SODIUM [Concomitant]
  4. HMG COA REDUCTASE INHIBITORS [Concomitant]
  5. CALCIUM CHANNEL BLOCKERS [Concomitant]
  6. DRONEDARONE HCL [Suspect]
     Route: 048
     Dates: start: 20100805, end: 20100811
  7. LASIX [Concomitant]
  8. LASIX [Concomitant]

REACTIONS (1)
  - CARDIAC FAILURE CONGESTIVE [None]
